FAERS Safety Report 22613788 (Version 1)
Quarter: 2023Q2

REPORT INFORMATION
  Report Type: Report from Study
  Country: US (occurrence: US)
  Receive Date: 20230619
  Receipt Date: 20230619
  Transmission Date: 20230721
  Serious: No
  Sender: FDA-Public Use
  Company Number: US-002147023-NVSC2023US138307

PATIENT
  Sex: Female
  Weight: 138.32 kg

DRUGS (7)
  1. CLINDAMYCIN [Suspect]
     Active Substance: CLINDAMYCIN
     Indication: Psoriasis
     Dosage: UNK
     Route: 065
  2. HYDROCORTISONE [Suspect]
     Active Substance: HYDROCORTISONE
     Indication: Psoriasis
     Dosage: UNK
     Route: 065
  3. CLOTRIMAZOLE [Suspect]
     Active Substance: CLOTRIMAZOLE
     Indication: Psoriasis
     Dosage: UNK
     Route: 065
  4. FLUOCINONIDE [Suspect]
     Active Substance: FLUOCINONIDE
     Indication: Psoriasis
     Dosage: UNK
     Route: 065
  5. WELLBUTRIN [Suspect]
     Active Substance: BUPROPION HYDROCHLORIDE
     Indication: Psoriasis
     Dosage: UNK
     Route: 065
  6. SPIRONOLACTONE [Suspect]
     Active Substance: SPIRONOLACTONE
     Indication: Psoriasis
     Dosage: UNK
     Route: 065
  7. HUMIRA [Suspect]
     Active Substance: ADALIMUMAB
     Indication: Hidradenitis
     Dosage: UNK
     Route: 065

REACTIONS (18)
  - Psoriasis [Unknown]
  - Dyshidrotic eczema [Unknown]
  - Pustular psoriasis [Unknown]
  - Hidradenitis [Unknown]
  - Condition aggravated [Unknown]
  - Genital infection fungal [Unknown]
  - Skin mass [Unknown]
  - Fistula [Unknown]
  - Rash erythematous [Unknown]
  - Intertrigo [Unknown]
  - Blister [Unknown]
  - Nodule [Unknown]
  - Seborrhoeic dermatitis [Unknown]
  - Pain in extremity [Unknown]
  - Erythema [Unknown]
  - Dermal cyst [Unknown]
  - Drug ineffective [Unknown]
  - Product use in unapproved indication [Unknown]
